FAERS Safety Report 5034054-9 (Version None)
Quarter: 2006Q2

REPORT INFORMATION
  Report Type: 
  Country: None (occurrence: None)
  Receive Date: 20060626
  Receipt Date: 20051102
  Transmission Date: 20061013
  Serious: Yes (Hospitalization)
  Sender: FDA-Public Use
  Company Number: US-AVENTIS-200520488US

PATIENT
  Sex: Female
  Weight: 47.2 kg

DRUGS (16)
  1. KETEK [Suspect]
     Indication: PNEUMONIA
     Route: 048
     Dates: start: 20050928, end: 20051003
  2. UNKNOWN DRUG [Concomitant]
  3. SYNTHROID [Concomitant]
  4. LASIX [Concomitant]
  5. NITROSTAT [Concomitant]
     Dosage: DOSE: PRN
  6. DUONEB [Concomitant]
     Dosage: DOSE: UNK
  7. ADVAIR DISKUS 100/50 [Concomitant]
     Dosage: DOSE: 250/50
  8. ASPIRIN [Concomitant]
  9. MULTIVITAMINS, PLAIN [Concomitant]
     Dosage: DOSE: UNK
  10. PREVACID [Concomitant]
  11. VIACTIV [Concomitant]
     Dosage: DOSE: UNK
  12. FOSAMAX [Concomitant]
  13. COZAAR [Concomitant]
  14. POTASSIUM CHLORIDE [Concomitant]
  15. LIPITOR [Concomitant]
  16. PLAVIX [Concomitant]

REACTIONS (12)
  - ABDOMINAL PAIN UPPER [None]
  - BRADYCARDIA [None]
  - CAROTID ARTERY OCCLUSION [None]
  - CHRONIC OBSTRUCTIVE PULMONARY DISEASE [None]
  - DYSPNOEA [None]
  - FLATULENCE [None]
  - FREQUENT BOWEL MOVEMENTS [None]
  - HYPERSENSITIVITY [None]
  - LOBAR PNEUMONIA [None]
  - ORAL MUCOSAL BLISTERING [None]
  - SICK SINUS SYNDROME [None]
  - THROAT TIGHTNESS [None]
